FAERS Safety Report 8818948 (Version 1)
Quarter: 2012Q4

REPORT INFORMATION
  Report Type: 
  Country: IT (occurrence: IT)
  Receive Date: 20121002
  Receipt Date: 20121002
  Transmission Date: 20130627
  Serious: Yes (Other)
  Sender: FDA-Public Use
  Company Number: IT-009507513-1209ITA009946

PATIENT
  Age: 50 Year
  Sex: Female

DRUGS (5)
  1. REMICADE [Suspect]
     Indication: SPONDYLITIS
     Dosage: UNK, Once
     Route: 042
     Dates: start: 20120914, end: 20120914
  2. FOSAVANCE [Suspect]
     Dosage: 70mg + 5600 IU
     Route: 048
  3. MEDROL [Concomitant]
     Route: 048
  4. METHOTREXATE [Concomitant]
     Dosage: 10mg/1.33 ml
     Route: 030
  5. FOLINA (FOLIC ACID) [Suspect]
     Route: 048

REACTIONS (2)
  - Hypertensive crisis [Recovered/Resolved]
  - Headache [Recovered/Resolved]
